FAERS Safety Report 11976667 (Version 5)
Quarter: 2016Q3

REPORT INFORMATION
  Report Type: Report from Study
  Country: JP (occurrence: JP)
  Receive Date: 20160129
  Receipt Date: 20160711
  Transmission Date: 20161109
  Serious: Yes (Death, Hospitalization)
  Sender: FDA-Public Use
  Company Number: JP-B.I. PHARMACEUTICALS,INC./RIDGEFIELD-2015-BI-62641NB

PATIENT
  Age: 85 Year
  Sex: Male
  Weight: 48.3 kg

DRUGS (2)
  1. LOPEMIN [Concomitant]
     Active Substance: LOPERAMIDE HYDROCHLORIDE
     Indication: PRODUCT USED FOR UNKNOWN INDICATION
     Dosage: 1 MG
     Route: 065
     Dates: start: 20151016
  2. OFEV [Suspect]
     Active Substance: NINTEDANIB
     Indication: IDIOPATHIC PULMONARY FIBROSIS
     Dosage: 300 MG
     Route: 048
     Dates: start: 20151016, end: 20151103

REACTIONS (7)
  - Pneumonia aspiration [Fatal]
  - Cerebral infarction [Fatal]
  - Liver disorder [Recovered/Resolved]
  - Duodenal ulcer haemorrhage [Not Recovered/Not Resolved]
  - Contusion [Unknown]
  - Pneumothorax [Recovered/Resolved]
  - Fall [Recovered/Resolved]

NARRATIVE: CASE EVENT DATE: 20151104
